FAERS Safety Report 9960669 (Version 1)
Quarter: 2014Q1

REPORT INFORMATION
  Report Type: Spontaneous
  Country: US (occurrence: None)
  Receive Date: 20140304
  Receipt Date: 20140304
  Transmission Date: 20141002
  Serious: Yes (Other)
  Sender: FDA-Public Use
  Company Number: None

PATIENT
  Sex: Female
  Weight: 89.81 kg

DRUGS (1)
  1. LAMOTRIGINE 200 MG TABLETS [Suspect]

REACTIONS (3)
  - Convulsion [None]
  - Drug ineffective [None]
  - Product substitution issue [None]
